FAERS Safety Report 10969807 (Version 3)
Quarter: 2016Q4

REPORT INFORMATION
  Report Type: Report from Study
  Country: FR (occurrence: FR)
  Receive Date: 20150327
  Receipt Date: 20161111
  Transmission Date: 20170206
  Serious: Yes (Other)
  Sender: FDA-Public Use
  Company Number: 2014TASFR000514

PATIENT
  Age: 68 Year
  Sex: Male
  Weight: 73 kg

DRUGS (12)
  1. METFORMIN [Concomitant]
     Active Substance: METFORMIN HYDROCHLORIDE
     Indication: DIABETES MELLITUS
     Dosage: 500 MG, TID
     Route: 048
     Dates: start: 20140617
  2. NOVONORM [Concomitant]
     Active Substance: REPAGLINIDE
     Indication: DIABETES MELLITUS
     Dosage: 1 MG, TID
     Route: 048
     Dates: start: 201212
  3. PARACETAMOL [Concomitant]
     Active Substance: ACETAMINOPHEN
     Indication: RHEUMATOID ARTHRITIS
     Dosage: 1000 UNK, TID
     Route: 048
     Dates: start: 20111006
  4. DIAMICRON [Concomitant]
     Active Substance: GLICLAZIDE
     Indication: DIABETES MELLITUS
     Dosage: 30 MG, QOD
     Route: 048
     Dates: start: 200401, end: 201212
  5. TAREG [Concomitant]
     Active Substance: VALSARTAN
     Indication: BLOOD PRESSURE INCREASED
     Dosage: 40 MG, QOD
     Route: 048
     Dates: start: 20090601, end: 20140617
  6. TASIMELTEON [Suspect]
     Active Substance: TASIMELTEON
     Dosage: 20 MG, QD
     Route: 048
     Dates: start: 20140628, end: 20140814
  7. TASIMELTEON [Suspect]
     Active Substance: TASIMELTEON
     Dosage: 20 MG, QD
     Dates: start: 20140909, end: 20140910
  8. KARDEGIC [Concomitant]
     Active Substance: ASPIRIN LYSINE
     Indication: HYPERTENSION
     Dosage: 75 MG, QD
     Route: 048
     Dates: start: 20140424
  9. DESLORATADINE. [Suspect]
     Active Substance: DESLORATADINE
     Indication: ALLERGIC COUGH
     Dosage: 5 MG, QD
     Route: 048
     Dates: start: 20140819, end: 20140826
  10. TASIMELTEON [Suspect]
     Active Substance: TASIMELTEON
     Indication: CIRCADIAN RHYTHM SLEEP DISORDER
     Dosage: 20 MG, QD
     Route: 048
     Dates: start: 20120131, end: 20140607
  11. PRAVASTATIN. [Suspect]
     Active Substance: PRAVASTATIN
     Indication: BLOOD CHOLESTEROL ABNORMAL
     Dosage: 40 MG, QOD
     Route: 048
     Dates: start: 20090601, end: 20140903
  12. LANTUS [Concomitant]
     Active Substance: INSULIN GLARGINE
     Indication: DIABETES MELLITUS
     Dosage: 10 DF, QOD
     Dates: start: 20120115, end: 20140617

REACTIONS (1)
  - Liver function test abnormal [Recovered/Resolved]

NARRATIVE: CASE EVENT DATE: 20140909
